FAERS Safety Report 8261692-2 (Version None)
Quarter: 2012Q2

REPORT INFORMATION
  Report Type: 
  Country: None (occurrence: None)
  Receive Date: 20120405
  Receipt Date: 20120327
  Transmission Date: 20120825
  Serious: Yes (Hospitalization, Other)
  Sender: FDA-Public Use
  Company Number: US-ELI_LILLY_AND_COMPANY-US201202001057

PATIENT
  Sex: Female

DRUGS (17)
  1. PREDNISONE TAB [Concomitant]
  2. PRILOSEC [Concomitant]
  3. COLACE [Concomitant]
  4. FORTEO [Suspect]
     Dosage: 20 UG, QD
  5. POTASSIUM [Concomitant]
  6. HIDROCLOROTIAZIDE [Concomitant]
  7. ASPIRIN [Concomitant]
  8. MIRALAX [Concomitant]
  9. FORTEO [Suspect]
     Indication: OSTEOPOROSIS
     Dosage: 20 UG, QD
     Dates: start: 20110401
  10. LUMIGAN [Concomitant]
  11. COZAAR [Concomitant]
  12. CALCIUM CARBONATE [Concomitant]
  13. LOPRESSOR [Concomitant]
  14. MEVACOR [Concomitant]
  15. VITAMIN D [Concomitant]
  16. CRANBERRY [Concomitant]
  17. ATIVAN [Concomitant]

REACTIONS (15)
  - DYSPNOEA [None]
  - PYREXIA [None]
  - GENERAL PHYSICAL CONDITION ABNORMAL [None]
  - DYSARTHRIA [None]
  - MYOCARDIAL INFARCTION [None]
  - SEPSIS [None]
  - LUNG DISORDER [None]
  - CHEST PAIN [None]
  - RESPIRATORY FAILURE [None]
  - PULMONARY FIBROSIS [None]
  - CARDIAC FAILURE CONGESTIVE [None]
  - RALES [None]
  - VOMITING [None]
  - TRANSIENT ISCHAEMIC ATTACK [None]
  - PNEUMONIA [None]
